FAERS Safety Report 8561471-2 (Version None)
Quarter: 2012Q3

REPORT INFORMATION
  Report Type: 
  Country: None (occurrence: None)
  Receive Date: 20120802
  Receipt Date: 20120725
  Transmission Date: 20120928
  Serious: No
  Sender: FDA-Public Use
  Company Number: US-BAYER-2012-075917

PATIENT
  Sex: Female

DRUGS (2)
  1. NATAZIA [Suspect]
     Indication: MENORRHAGIA
  2. NATAZIA [Suspect]
     Indication: MUSCLE SPASMS

REACTIONS (1)
  - ADVERSE DRUG REACTION [None]
